FAERS Safety Report 21337156 (Version 2)
Quarter: 2022Q4

REPORT INFORMATION
  Report Type: Spontaneous
  Country: DE (occurrence: DE)
  Receive Date: 20220915
  Receipt Date: 20221208
  Transmission Date: 20230113
  Serious: Yes (Death, Life-Threatening, Other)
  Sender: FDA-Public Use
  Company Number: DE-AMGEN-DEUSP2022155800

PATIENT

DRUGS (6)
  1. BEVACIZUMAB [Suspect]
     Active Substance: BEVACIZUMAB
     Indication: Non-small cell lung cancer stage IV
     Dosage: UNK
     Route: 065
  2. ATEZOLIZUMAB [Suspect]
     Active Substance: ATEZOLIZUMAB
     Indication: Non-small cell lung cancer stage IV
     Dosage: UNK
     Route: 065
     Dates: start: 201810
  3. CARBOPLATIN [Suspect]
     Active Substance: CARBOPLATIN
     Indication: Non-small cell lung cancer stage IV
     Dosage: UNK
     Route: 065
     Dates: start: 201810
  4. PACLITAXEL [Suspect]
     Active Substance: PACLITAXEL
     Indication: Non-small cell lung cancer stage IV
     Dosage: UNK
     Route: 065
     Dates: start: 201810
  5. AFATINIB [Concomitant]
     Active Substance: AFATINIB
     Indication: Product used for unknown indication
     Dosage: UNK, 4X
     Route: 065
  6. OSIMERTINIB [Concomitant]
     Active Substance: OSIMERTINIB
     Indication: Product used for unknown indication
     Dosage: UNK
     Route: 065

REACTIONS (8)
  - Death [Fatal]
  - Adverse event [Unknown]
  - Immune-mediated lung disease [Unknown]
  - Non-small cell lung cancer [Unknown]
  - Neutropenia [Unknown]
  - Therapy partial responder [Unknown]
  - Mucosal inflammation [Unknown]
  - Impaired healing [Unknown]
